FAERS Safety Report 7715628-0 (Version None)
Quarter: 2011Q3

REPORT INFORMATION
  Report Type: 
  Country: None (occurrence: None)
  Receive Date: 20110829
  Receipt Date: 20110818
  Transmission Date: 20111222
  Serious: Yes (Disabling)
  Sender: FDA-Public Use
  Company Number: US-ROCHE-794420

PATIENT
  Sex: Female
  Weight: 51.8 kg

DRUGS (9)
  1. OXYCODONE HCL [Concomitant]
     Indication: PAIN
     Dosage: 5 MG, Q6H
     Route: 048
     Dates: start: 20110623
  2. ACETAMINOPHEN [Concomitant]
     Indication: PAIN
     Dosage: 500 MG, Q5D
     Dates: start: 20110623
  3. AVASTIN [Suspect]
     Dosage: 7.5 MG/KG, Q3W
     Route: 042
     Dates: start: 20090130
  4. LEVOFLOXACIN [Concomitant]
     Indication: SINUSITIS
     Dosage: 500 MG, QD
     Route: 048
     Dates: start: 20110116
  5. ERGOCALCIFEROL [Concomitant]
     Indication: PRODUCT USED FOR UNKNOWN INDICATION
     Dosage: 1.25 MG, 2/WEEK
     Route: 048
     Dates: start: 20110318
  6. CARDURA [Concomitant]
     Indication: HYPERTENSION
     Dosage: 1 MG, QD
     Route: 048
     Dates: start: 20110718
  7. POTASSIUM CHLORIDE [Concomitant]
     Indication: PRODUCT USED FOR UNKNOWN INDICATION
     Dosage: 20 MEQ, QD
     Route: 048
     Dates: start: 20101209
  8. IBUPROFEN [Concomitant]
     Indication: PAIN
     Dosage: 200 MG, Q6H
     Route: 048
     Dates: start: 20110623
  9. AMLODIPINE [Concomitant]
     Indication: HYPERTENSION
     Dosage: 2.5 MG, QHS
     Route: 048
     Dates: start: 20110712, end: 20110717

REACTIONS (1)
  - NEPHROPATHY TOXIC [None]
